FAERS Safety Report 5570042-1 (Version None)
Quarter: 2007Q4

REPORT INFORMATION
  Report Type: 
  Country: None (occurrence: None)
  Receive Date: 20071220
  Receipt Date: 20071212
  Transmission Date: 20080405
  Serious: Yes (Hospitalization)
  Sender: FDA-Public Use
  Company Number: US-GENENTECH-252712

PATIENT
  Sex: Male

DRUGS (9)
  1. BEVACIZUMAB [Suspect]
     Indication: RECTAL CANCER
     Dosage: 431 MG, UNK
     Dates: start: 20070611, end: 20071126
  2. FLUOROURACIL [Suspect]
     Indication: RECTAL CANCER
     Dosage: 812 MG, UNK
     Route: 040
     Dates: start: 20070611, end: 20071126
  3. FLUOROURACIL [Suspect]
     Dosage: 4872 MG, UNK
     Route: 042
     Dates: start: 20070611, end: 20071126
  4. LEUCOVORIN CALCIUM [Suspect]
     Indication: RECTAL CANCER
     Dosage: 350 MG, UNK
     Dates: start: 20070611, end: 20071126
  5. OXALIPLATIN [Suspect]
     Indication: RECTAL CANCER
     Dosage: 173 MG, UNK
     Dates: start: 20070611, end: 20071126
  6. RADIATION THERAPY [Suspect]
     Indication: RECTAL CANCER
  7. MORPHINE [Concomitant]
     Indication: DRUG USE FOR UNKNOWN INDICATION
     Dosage: 15 MG, Q12H
     Route: 048
     Dates: start: 20071116
  8. PAXIL [Concomitant]
     Indication: DRUG USE FOR UNKNOWN INDICATION
     Dosage: 10 MG, QD
     Dates: start: 20070924
  9. ATIVAN [Concomitant]
     Indication: DRUG USE FOR UNKNOWN INDICATION
     Dosage: 1 MG, PRN
     Route: 048
     Dates: start: 20070702

REACTIONS (3)
  - COLONIC OBSTRUCTION [None]
  - INTESTINAL PERFORATION [None]
  - PROCTALGIA [None]
